FAERS Safety Report 5862154-X (Version None)
Quarter: 2008Q3

REPORT INFORMATION
  Report Type: 
  Country: None (occurrence: None)
  Receive Date: 20080828
  Receipt Date: 20080219
  Transmission Date: 20090109
  Serious: No
  Sender: FDA-Public Use
  Company Number: A0710817A

PATIENT
  Age: 52 Year
  Sex: Female

DRUGS (1)
  1. ZOVIRAX [Suspect]
     Indication: HERPES VIRUS INFECTION
     Route: 061
     Dates: start: 20080124, end: 20080124

REACTIONS (1)
  - DRUG INEFFECTIVE [None]
